FAERS Safety Report 9547482 (Version 3)
Quarter: 2014Q2

REPORT INFORMATION
  Report Type: Spontaneous
  Country: US (occurrence: None)
  Receive Date: 20130606
  Receipt Date: 20140604
  Transmission Date: 20141212
  Serious: Yes (Other)
  Sender: FDA-Public Use
  Company Number: 163-POMAL-13050506

PATIENT
  Age: 68 Year
  Sex: Male
  Weight: 109.77 kg

DRUGS (15)
  1. POMALYST [Suspect]
     Indication: PLASMA CELL MYELOMA
     Dosage: 4 MG ,  1 IN 1 D, PO  04/30/2013 -  ONGOING THERAPY DATES
     Route: 048
     Dates: start: 20130430
  2. MORPHINE SULFATE ER (MORPHINE SULFATE) [Concomitant]
  3. METOPROLOL (METOPROLOL) [Concomitant]
  4. METOPROLOL(METOPROLOL) [Concomitant]
  5. ATORVASTATIN (ATORVASTATIN) [Concomitant]
  6. PROPAFENONE(PROPAFENONE) [Concomitant]
  7. OMEPRAZOLE(OMEPRAZOLE) [Concomitant]
  8. ALPRAZOLAM(ALPRAZOLAM) [Concomitant]
  9. VITAMIN D3 (COLECALCIFEROL) [Concomitant]
  10. ASPIRIN(ACETYLSALICYLIC ACID) [Concomitant]
  11. MELATONIN(MELATONIN) [Concomitant]
  12. WARFARIN (WARFARIN) [Concomitant]
  13. LACTULOSE(LACTULOSE) [Concomitant]
  14. SENNA-S(COLOXYL WITH SENNA) [Concomitant]
  15. VELCADE (BORTEZOMIB) [Concomitant]

REACTIONS (6)
  - Pruritus [None]
  - Dizziness [None]
  - Haemoglobin decreased [None]
  - Fall [None]
  - Confusional state [None]
  - Platelet count decreased [None]
